FAERS Safety Report 8175478-0 (Version None)
Quarter: 2012Q1

REPORT INFORMATION
  Report Type: 
  Country: None (occurrence: None)
  Receive Date: 20120229
  Receipt Date: 20120223
  Transmission Date: 20120608
  Serious: Yes (Other)
  Sender: FDA-Public Use
  Company Number: US-RB-037667-12

PATIENT
  Sex: Female

DRUGS (3)
  1. SUBOXONE [Suspect]
     Indication: DRUG DEPENDENCE
     Dosage: 2 MG EVERY 15 MINUTES UP TO 8 MG
     Route: 060
     Dates: start: 20120216, end: 20120216
  2. SUBOXONE [Suspect]
     Route: 060
     Dates: start: 20120217
  3. BENZODIAZEPINES [Suspect]
     Indication: ANXIETY
     Route: 048

REACTIONS (2)
  - OFF LABEL USE [None]
  - CONVULSION [None]
